FAERS Safety Report 8814734 (Version 1)
Quarter: 2012Q4

REPORT INFORMATION
  Report Type: 
  Country: US (occurrence: US)
  Receive Date: 20120928
  Receipt Date: 20120928
  Transmission Date: 20130627
  Serious: Yes (Other)
  Sender: FDA-Public Use
  Company Number: US-PFIZER INC-2012239261

PATIENT
  Age: 50 Year
  Sex: Male
  Weight: 77.1 kg

DRUGS (3)
  1. VIAGRA [Suspect]
     Dosage: UNK
     Dates: start: 201202, end: 201202
  2. METOPROLOL [Concomitant]
     Indication: HYPERTENSION
     Dosage: 50 mg, daily
  3. FISH OIL [Concomitant]
     Dosage: UNK

REACTIONS (3)
  - Visual impairment [Not Recovered/Not Resolved]
  - Blood cholesterol increased [Recovered/Resolved]
  - Headache [Not Recovered/Not Resolved]
